FAERS Safety Report 5154342-5 (Version None)
Quarter: 2006Q4

REPORT INFORMATION
  Report Type: 
  Country: None (occurrence: None)
  Receive Date: 20061114
  Receipt Date: 20061030
  Transmission Date: 20070319
  Serious: Yes (Other)
  Sender: FDA-Public Use
  Company Number: 2006136535

PATIENT
  Age: 75 Year
  Sex: Female

DRUGS (8)
  1. NEURONTIN [Suspect]
     Indication: PAIN
  2. LYRICA [Suspect]
     Indication: PAIN
     Dosage: 75 MG (75 MG, 1 IN 1 D)
     Dates: start: 20061026, end: 20060101
  3. ACETAMINOPHEN W/ PROPOXYPHENE HCL [Concomitant]
  4. VOLTAREN [Concomitant]
  5. KARDEGIC (ACETYLSAILCYLATE LYSINE) [Concomitant]
  6. ALDACTONE [Concomitant]
  7. BISOPROLOL FUMARATE [Concomitant]
  8. ACETAMINOPHEN [Concomitant]

REACTIONS (11)
  - CONDITION AGGRAVATED [None]
  - COORDINATION ABNORMAL [None]
  - DRUG INEFFECTIVE [None]
  - GAIT DISTURBANCE [None]
  - MUSCULOSKELETAL STIFFNESS [None]
  - NECROSIS [None]
  - PAIN [None]
  - PARAESTHESIA [None]
  - SOMNOLENCE [None]
  - SPEECH DISORDER [None]
  - TOOTH INFECTION [None]
